FAERS Safety Report 6686390-8 (Version None)
Quarter: 2010Q2

REPORT INFORMATION
  Report Type: 
  Country: None (occurrence: None)
  Receive Date: 20100419
  Receipt Date: 20100409
  Transmission Date: 20101027
  Serious: Yes (Hospitalization)
  Sender: FDA-Public Use
  Company Number: US-JNJFOC-20100403160

PATIENT
  Age: 74 Year
  Sex: Male
  Weight: 92.99 kg

DRUGS (6)
  1. EXTRA STRENGTH TYLENOL PM [Suspect]
     Indication: INSOMNIA
     Route: 048
  2. EXTRA STRENGTH TYLENOL [Concomitant]
     Indication: PAIN
  3. DIOVAN [Concomitant]
     Indication: BLOOD PRESSURE ABNORMAL
     Dosage: TAKING FOR 12-18 MONTHS
  4. LAMICTAL [Concomitant]
     Indication: CONVULSION
  5. DILANTIN [Concomitant]
     Indication: CONVULSION
     Dosage: 100 MG 3 TIMES DAILY AND 30 MG TWICE DAILY
  6. WARFARIN [Concomitant]
     Indication: ANTICOAGULANT THERAPY

REACTIONS (4)
  - CONVULSION [None]
  - DIARRHOEA [None]
  - PRODUCT QUALITY ISSUE [None]
  - URINARY TRACT INFECTION [None]
